FAERS Safety Report 18110737 (Version 3)
Quarter: 2020Q4

REPORT INFORMATION
  Report Type: Spontaneous
  Country: BR (occurrence: BR)
  Receive Date: 20200804
  Receipt Date: 20201126
  Transmission Date: 20210113
  Serious: Yes (Hospitalization, Other)
  Sender: FDA-Public Use
  Company Number: BR-B.I. PHARMACEUTICALS,INC./RIDGEFIELD-2020-BI-038786

PATIENT
  Age: 80 Year
  Sex: Male
  Weight: 78 kg

DRUGS (5)
  1. AZITROMICINA [Concomitant]
     Active Substance: AZITHROMYCIN DIHYDRATE
     Dosage: ON ALTERNATE DAYS
  2. OFEV [Suspect]
     Active Substance: NINTEDANIB
     Indication: IDIOPATHIC PULMONARY FIBROSIS
     Dates: start: 201906
  3. OFEV [Suspect]
     Active Substance: NINTEDANIB
     Dates: start: 20200417
  4. OMEPRAZOLE. [Concomitant]
     Active Substance: OMEPRAZOLE
  5. FLUTICASONE;FORMOTEROL [Concomitant]
     Active Substance: FLUTICASONE\FORMOTEROL

REACTIONS (8)
  - Amnesia [Recovering/Resolving]
  - Myelodysplastic syndrome [Not Recovered/Not Resolved]
  - Diarrhoea [Recovered/Resolved]
  - Nausea [Recovered/Resolved]
  - Acute erythroid leukaemia [Not Recovered/Not Resolved]
  - Occult blood positive [Unknown]
  - Iron deficiency anaemia [Not Recovered/Not Resolved]
  - Irritability [Recovered/Resolved]

NARRATIVE: CASE EVENT DATE: 202003
